FAERS Safety Report 15406488 (Version 1)
Quarter: 2018Q3

REPORT INFORMATION
  Report Type: Spontaneous
  Country: US (occurrence: US)
  Receive Date: 20180912
  Receipt Date: 20180912
  Transmission Date: 20181010
  Serious: No
  Sender: FDA-Public Use
  Company Number: None

PATIENT
  Age: 62 Year
  Sex: Female

DRUGS (1)
  1. OCTREOTIDE 1ML SDV 50MCG/ML TEVA PARENTERAL MEDICINES [Suspect]
     Active Substance: OCTREOTIDE
     Indication: CARCINOID TUMOUR
     Route: 058
     Dates: start: 20180901, end: 20180905

REACTIONS (1)
  - Blood pressure decreased [None]

NARRATIVE: CASE EVENT DATE: 20180905
